FAERS Safety Report 19461870 (Version 1)
Quarter: 2021Q2

REPORT INFORMATION
  Report Type: Spontaneous
  Country: US (occurrence: US)
  Receive Date: 20210625
  Receipt Date: 20210625
  Transmission Date: 20210717
  Serious: No
  Sender: FDA-Public Use
  Company Number: US-ELI_LILLY_AND_COMPANY-US202106010234

PATIENT
  Age: 72 Year
  Sex: Male

DRUGS (2)
  1. TRULICITY [Suspect]
     Active Substance: DULAGLUTIDE
     Indication: TYPE 2 DIABETES MELLITUS
     Dosage: 1.5 MG, WEEKLY (1/W)
     Route: 065
     Dates: start: 2020
  2. SALINE [SODIUM CHLORIDE] [Suspect]
     Active Substance: SODIUM CHLORIDE
     Indication: EYE IRRITATION
     Dosage: UNK UNK, UNKNOWN
     Route: 065
     Dates: start: 20210618

REACTIONS (2)
  - Eye irritation [Unknown]
  - Vision blurred [Unknown]

NARRATIVE: CASE EVENT DATE: 20210618
